FAERS Safety Report 5664271-6 (Version None)
Quarter: 2008Q1

REPORT INFORMATION
  Report Type: 
  Country: None (occurrence: None)
  Receive Date: 20080314
  Receipt Date: 20080307
  Transmission Date: 20080703
  Serious: Yes (Other)
  Sender: FDA-Public Use
  Company Number: US-GENENTECH-255780

PATIENT
  Sex: Male
  Weight: 89.342 kg

DRUGS (1)
  1. AVASTIN [Suspect]
     Indication: COLON CANCER
     Dosage: UNK, Q2W
     Route: 042

REACTIONS (1)
  - VITREOUS HAEMORRHAGE [None]
